FAERS Safety Report 22064377 (Version 1)
Quarter: 2023Q1

REPORT INFORMATION
  Report Type: Spontaneous
  Country: US (occurrence: US)
  Receive Date: 20230306
  Receipt Date: 20230306
  Transmission Date: 20230418
  Serious: No
  Sender: FDA-Public Use
  Company Number: US-BAYER-2023A022753

PATIENT
  Age: 72 Year

DRUGS (2)
  1. MIRALAX [Suspect]
     Active Substance: POLYETHYLENE GLYCOL 3350
     Indication: Gastric disorder
     Dosage: UNK
     Route: 048
  2. LINZESS [Concomitant]
     Active Substance: LINACLOTIDE

REACTIONS (3)
  - Drug ineffective [None]
  - Product packaging quantity issue [None]
  - Product use in unapproved indication [None]
